FAERS Safety Report 13839265 (Version 3)
Quarter: 2017Q3

REPORT INFORMATION
  Report Type: Spontaneous
  Country: US (occurrence: US)
  Receive Date: 20170807
  Receipt Date: 20170925
  Transmission Date: 20171127
  Serious: Yes (Hospitalization, Other)
  Sender: FDA-Public Use
  Company Number: US-AUROBINDO-AUR-APL-2017-38254

PATIENT
  Age: 84 Year
  Sex: Male

DRUGS (1)
  1. DONEPEZIL HYDROCHLORIDE FILM-COATED TABLETS 5MG [Suspect]
     Active Substance: DONEPEZIL HYDROCHLORIDE
     Indication: PRODUCT USED FOR UNKNOWN INDICATION
     Dosage: 35MG OF DONEPEZIL (7 DOSES OF HIS DAILY 5MG TABLETS).
     Route: 048

REACTIONS (12)
  - Nausea [Unknown]
  - Accidental overdose [Unknown]
  - Diarrhoea [Unknown]
  - Confusional state [Unknown]
  - Electrocardiogram QT prolonged [Recovered/Resolved]
  - Fatigue [Unknown]
  - Supraventricular extrasystoles [Recovered/Resolved]
  - Bradycardia [Recovered/Resolved]
  - Salivary hypersecretion [Recovered/Resolved]
  - Vomiting [Unknown]
  - Hyperhidrosis [Unknown]
  - Miosis [Recovered/Resolved]
